FAERS Safety Report 9996566 (Version 5)
Quarter: 2014Q3

REPORT INFORMATION
  Report Type: Report from Study
  Country: DE (occurrence: DE)
  Receive Date: 20140311
  Receipt Date: 20140731
  Transmission Date: 20150326
  Serious: Yes (Death, Hospitalization)
  Sender: FDA-Public Use
  Company Number: DE-BRISTOL-MYERS SQUIBB COMPANY-20240404

PATIENT
  Age: 83 Year
  Sex: Male
  Weight: 68 kg

DRUGS (8)
  1. IPILIMUMAB [Suspect]
     Active Substance: IPILIMUMAB
     Indication: MALIGNANT MELANOMA
     Dosage: DRUG INTERRUPTED ON 29-JAN-2014
     Route: 042
     Dates: start: 20131127, end: 20140129
  2. CLOPIDOGREL BISULFATE. [Concomitant]
     Active Substance: CLOPIDOGREL BISULFATE
  3. RANITIDINE [Concomitant]
     Active Substance: RANITIDINE\RANITIDINE HYDROCHLORIDE
  4. ASPIRIN. [Concomitant]
     Active Substance: ASPIRIN
  5. AMLODIPINE [Concomitant]
     Active Substance: AMLODIPINE BESYLATE
  6. TAFLOTAN [Concomitant]
     Active Substance: TAFLUPROST
  7. HERBAL NOS [Concomitant]
     Active Substance: HERBALS
  8. ZOCOR [Concomitant]
     Active Substance: SIMVASTATIN

REACTIONS (2)
  - Anaemia [Fatal]
  - Colitis [Fatal]

NARRATIVE: CASE EVENT DATE: 20140214
